FAERS Safety Report 5373371-X (Version None)
Quarter: 2007Q2

REPORT INFORMATION
  Report Type: 
  Country: None (occurrence: None)
  Receive Date: 20070628
  Receipt Date: 20070619
  Transmission Date: 20071010
  Serious: Yes (Life-Threatening, Other)
  Sender: FDA-Public Use
  Company Number: US-JNJFOC-20070500044

PATIENT
  Sex: Male
  Weight: 86.18 kg

DRUGS (2)
  1. LEVAQUIN [Suspect]
     Indication: URINARY TRACT INFECTION
     Route: 065
  2. LEVAQUIN [Suspect]
     Indication: STENT REMOVAL
     Route: 065

REACTIONS (1)
  - ACUTE RESPIRATORY DISTRESS SYNDROME [None]
